FAERS Safety Report 14040840 (Version 7)
Quarter: 2020Q2

REPORT INFORMATION
  Report Type: Spontaneous
  Country: US (occurrence: US)
  Receive Date: 20171004
  Receipt Date: 20200615
  Transmission Date: 20200713
  Serious: No
  Sender: FDA-Public Use
  Company Number: US-ACTELION-A-US2017-149474

PATIENT
  Sex: Male
  Weight: 80.73 kg

DRUGS (13)
  1. UPTRAVI [Suspect]
     Active Substance: SELEXIPAG
     Dosage: 1200 MCG, BID
     Route: 048
  2. HYDROCORTISONE. [Concomitant]
     Active Substance: HYDROCORTISONE
  3. ADCIRCA [Concomitant]
     Active Substance: TADALAFIL
     Dosage: 40 UNK, UNK
     Dates: start: 2013
  4. UPTRAVI [Suspect]
     Active Substance: SELEXIPAG
     Dosage: 200 MCG AM 400 MCG PM
     Route: 048
  5. ANTINEOPLASTIC AGENTS [Concomitant]
     Active Substance: UNSPECIFIED INGREDIENT
     Indication: METASTATIC MALIGNANT MELANOMA
  6. ALLOPURINOL. [Concomitant]
     Active Substance: ALLOPURINOL
  7. PANTOPRAZOLE [Concomitant]
     Active Substance: PANTOPRAZOLE
  8. UPTRAVI [Suspect]
     Active Substance: SELEXIPAG
     Dosage: 200 MCG, BID
     Route: 048
     Dates: start: 20170915
  9. UPTRAVI [Suspect]
     Active Substance: SELEXIPAG
     Dosage: 1000 MCG, BID
     Route: 048
  10. OMEPRAZOLE. [Concomitant]
     Active Substance: OMEPRAZOLE
  11. OPSUMIT [Suspect]
     Active Substance: MACITENTAN
     Indication: PULMONARY ARTERIAL HYPERTENSION
     Dosage: 10 MG, QD
     Route: 048
     Dates: start: 2013
  12. UPTRAVI [Suspect]
     Active Substance: SELEXIPAG
     Indication: PULMONARY ARTERIAL HYPERTENSION
     Dosage: 400 MCG, BID
     Route: 048
  13. TRAMADOL. [Concomitant]
     Active Substance: TRAMADOL

REACTIONS (19)
  - Myalgia [Unknown]
  - Arthralgia [Unknown]
  - Hypotension [Recovered/Resolved]
  - Arthropod bite [Unknown]
  - Decreased appetite [Unknown]
  - Bronchitis [Unknown]
  - Somnolence [Unknown]
  - Sleep disorder due to general medical condition, hypersomnia type [Not Recovered/Not Resolved]
  - Nausea [Unknown]
  - Adrenal disorder [Unknown]
  - Fatigue [Unknown]
  - Dizziness [Recovered/Resolved]
  - Hypertonic bladder [Unknown]
  - Hepatic function abnormal [Unknown]
  - Asthenia [Unknown]
  - Therapy non-responder [Unknown]
  - Pain in jaw [Unknown]
  - Headache [Not Recovered/Not Resolved]
  - Diarrhoea [Unknown]
